FAERS Safety Report 11105180 (Version 6)
Quarter: 2015Q4

REPORT INFORMATION
  Report Type: Report from Study
  Country: FR (occurrence: FR)
  Receive Date: 20150511
  Receipt Date: 20151106
  Transmission Date: 20160304
  Serious: Yes (Other)
  Sender: FDA-Public Use
  Company Number: PHHY2015FR055807

PATIENT
  Age: 59 Year
  Sex: Female

DRUGS (9)
  1. LDK378 [Suspect]
     Active Substance: CERITINIB
     Indication: NON-SMALL CELL LUNG CANCER METASTATIC
     Dosage: 750 MG, QD
     Route: 065
     Dates: start: 20150318, end: 20150504
  2. PRIMPERAN [Interacting]
     Active Substance: METOCLOPRAMIDE HYDROCHLORIDE
     Indication: NAUSEA
     Dosage: 2 DF, QD
     Route: 065
     Dates: start: 20150404, end: 20150417
  3. LDK378 [Interacting]
     Active Substance: CERITINIB
     Indication: METASTASES TO CENTRAL NERVOUS SYSTEM
  4. PRIMPERAN [Interacting]
     Active Substance: METOCLOPRAMIDE HYDROCHLORIDE
     Indication: VOMITING
     Dosage: 2 DF, TID (3 PER DAY)
     Route: 065
     Dates: start: 20150418, end: 20150504
  5. OXYNORM [Concomitant]
     Active Substance: OXYCODONE HYDROCHLORIDE
     Indication: PRODUCT USED FOR UNKNOWN INDICATION
     Dosage: 5 MG, 1 TO 2 PER DAY
     Route: 065
  6. LDK378 [Interacting]
     Active Substance: CERITINIB
     Indication: ADENOCARCINOMA
     Dosage: 300 MG ONE DAY AND 450 MG ALTERNATIVELY
     Route: 065
     Dates: start: 20150723
  7. XGEVA [Concomitant]
     Active Substance: DENOSUMAB
     Indication: PRODUCT USED FOR UNKNOWN INDICATION
     Dosage: 120 MG, QMO
     Route: 065
  8. DAFALGAN [Concomitant]
     Active Substance: ACETAMINOPHEN
     Indication: PRODUCT USED FOR UNKNOWN INDICATION
     Dosage: 1 G, 1 TO 3 PER DAY
     Route: 065
  9. LDK378 [Interacting]
     Active Substance: CERITINIB
     Indication: METASTASES TO BONE

REACTIONS (9)
  - Hepatotoxicity [Recovering/Resolving]
  - Blood alkaline phosphatase increased [Recovering/Resolving]
  - Vomiting [Unknown]
  - Bilirubin conjugated increased [Recovered/Resolved]
  - Alanine aminotransferase increased [Unknown]
  - Drug interaction [Unknown]
  - Gamma-glutamyltransferase increased [Recovering/Resolving]
  - Aspartate aminotransferase increased [Unknown]
  - Nausea [Unknown]

NARRATIVE: CASE EVENT DATE: 20150504
